FAERS Safety Report 5922641-2 (Version None)
Quarter: 2008Q3

REPORT INFORMATION
  Report Type: 
  Country: None (occurrence: None)
  Receive Date: 20080909
  Receipt Date: 20071023
  Transmission Date: 20090109
  Serious: Yes (Death, Other)
  Sender: FDA-Public Use
  Company Number: 163-20785-06081097

PATIENT
  Age: 74 Year
  Sex: Female

DRUGS (14)
  1. THALOMID [Suspect]
     Indication: CYTOGENETIC ANALYSIS ABNORMAL
     Dosage: 100 MG, 1 IN 1 D, ORAL, 200 MG, 2 IN 1 D, ORAL
     Route: 048
     Dates: start: 20050701, end: 20050801
  2. THALOMID [Suspect]
     Indication: MULTIPLE MYELOMA
     Dosage: 100 MG, 1 IN 1 D, ORAL, 200 MG, 2 IN 1 D, ORAL
     Route: 048
     Dates: start: 20050701, end: 20050801
  3. THALOMID [Suspect]
     Indication: CYTOGENETIC ANALYSIS ABNORMAL
     Dosage: 100 MG, 1 IN 1 D, ORAL, 200 MG, 2 IN 1 D, ORAL
     Route: 048
     Dates: start: 20050801, end: 20060201
  4. THALOMID [Suspect]
     Indication: MULTIPLE MYELOMA
     Dosage: 100 MG, 1 IN 1 D, ORAL, 200 MG, 2 IN 1 D, ORAL
     Route: 048
     Dates: start: 20050801, end: 20060201
  5. LOVENOX [Concomitant]
  6. FERROUS SULFATE TAB [Concomitant]
  7. SYNTHROID [Concomitant]
  8. TOPROL-XL [Concomitant]
  9. THEOPHYLLINE [Concomitant]
  10. HYDROMORPHONE HCL [Concomitant]
  11. PAROXETINE HCL [Concomitant]
  12. PREVACID [Concomitant]
  13. ALLEGRA D (ALLEGRA-D) [Concomitant]
  14. COMPAZINE [Concomitant]

REACTIONS (6)
  - BLOOD CREATININE INCREASED [None]
  - DRUG INEFFECTIVE [None]
  - FATIGUE [None]
  - MALIGNANT NEOPLASM PROGRESSION [None]
  - MULTIPLE MYELOMA [None]
  - RENAL IMPAIRMENT [None]
